FAERS Safety Report 22274714 (Version 8)
Quarter: 2024Q2

REPORT INFORMATION
  Report Type: Report from Study
  Country: US (occurrence: US)
  Receive Date: 20230502
  Receipt Date: 20240504
  Transmission Date: 20240716
  Serious: Yes (Other)
  Sender: FDA-Public Use
  Company Number: US-002147023-NVSC2023US099713

PATIENT
  Sex: Female

DRUGS (1)
  1. KESIMPTA [Suspect]
     Active Substance: OFATUMUMAB
     Indication: Product used for unknown indication
     Dosage: UNK
     Route: 065

REACTIONS (12)
  - Seizure [Unknown]
  - Memory impairment [Unknown]
  - Aphasia [Unknown]
  - Hypoaesthesia [Unknown]
  - Magnetic resonance imaging abnormal [Unknown]
  - Coordination abnormal [Unknown]
  - Nasopharyngitis [Unknown]
  - Pain [Unknown]
  - Headache [Unknown]
  - Oropharyngeal pain [Unknown]
  - Ear pain [Unknown]
  - Product storage error [Unknown]
